FAERS Safety Report 10304113 (Version 2)
Quarter: 2014Q3

REPORT INFORMATION
  Report Type: Spontaneous
  Country: US (occurrence: US)
  Receive Date: 20140714
  Receipt Date: 20140714
  Transmission Date: 20150326
  Serious: No
  Sender: FDA-Public Use
  Company Number: US-ASTRAZENECA-2014SE33651

PATIENT
  Age: 77 Year
  Sex: Female
  Weight: 79.4 kg

DRUGS (18)
  1. FLAX SEED [Concomitant]
     Active Substance: FLAX SEED
  2. ARIMIDEX [Suspect]
     Active Substance: ANASTROZOLE
     Indication: BREAST CANCER
     Route: 048
     Dates: start: 201211
  3. PAROXETINE [Concomitant]
     Active Substance: PAROXETINE\PAROXETINE HYDROCHLORIDE
     Indication: ANXIETY
  4. METAMUCIL [Concomitant]
     Active Substance: PLANTAGO SEED
  5. CALCIUM [Concomitant]
     Active Substance: CALCIUM
  6. VITAMIN D WITH C [Concomitant]
  7. LEVOTHYROXINE [Concomitant]
     Active Substance: LEVOTHYROXINE
  8. AMITRIPTYLINE [Concomitant]
     Active Substance: AMITRIPTYLINE
     Indication: MENTAL DISORDER
  9. ATORVASTATIN [Concomitant]
     Active Substance: ATORVASTATIN
     Indication: BLOOD CHOLESTEROL INCREASED
  10. SUPER B COMPLEX WITH C [Concomitant]
  11. ARIMIDEX [Suspect]
     Active Substance: ANASTROZOLE
     Indication: BREAST CANCER
     Route: 048
  12. SULFALAXIN [Concomitant]
     Indication: MULTIPLE ALLERGIES
  13. OMEPRAZOLE. [Suspect]
     Active Substance: OMEPRAZOLE
     Indication: GASTROOESOPHAGEAL REFLUX DISEASE
     Route: 048
  14. AMLODIPINE BESYLATE. [Concomitant]
     Active Substance: AMLODIPINE BESYLATE
     Indication: HYPERTENSION
  15. ALKALOL WITH WATER AS NASAL WASH [Concomitant]
     Indication: SINUS CONGESTION
  16. ASPIRIN. [Concomitant]
     Active Substance: ASPIRIN
  17. MULTI VITAMIN SENIOR [Concomitant]
  18. FISH OIL [Concomitant]
     Active Substance: FISH OIL

REACTIONS (5)
  - Personality change [Unknown]
  - Blood cholesterol abnormal [Unknown]
  - Skin wrinkling [Unknown]
  - Insomnia [Recovered/Resolved]
  - Hypertension [Unknown]

NARRATIVE: CASE EVENT DATE: 201303
